FAERS Safety Report 9425766 (Version 1)
Quarter: 2013Q3

REPORT INFORMATION
  Report Type: Spontaneous
  Country: IT (occurrence: IT)
  Receive Date: 20130729
  Receipt Date: 20130729
  Transmission Date: 20140515
  Serious: Yes (Other)
  Sender: FDA-Public Use
  Company Number: IT-ACTAVIS-2013-12731

PATIENT
  Age: 21 Year
  Sex: Female

DRUGS (8)
  1. ARIPIPRAZOLE (UNKNOWN) [Suspect]
     Indication: TOURETTE^S DISORDER
     Dosage: 7.5 MG, DAILY
     Route: 065
  2. ARIPIPRAZOLE (UNKNOWN) [Interacting]
     Dosage: 2.5 MG, DAILY
     Route: 065
  3. FLUOXETINE HYDROCHLORIDE (UNKNOWN) [Interacting]
     Indication: TOURETTE^S DISORDER
     Dosage: 20 MG, DAILY
     Route: 065
  4. FLUOXETINE HYDROCHLORIDE (UNKNOWN) [Interacting]
     Indication: OBSESSIVE-COMPULSIVE PERSONALITY DISORDER
  5. FLUOXETINE HYDROCHLORIDE (UNKNOWN) [Interacting]
     Indication: SELF INJURIOUS BEHAVIOUR
  6. TIAPRIDE [Concomitant]
     Indication: TOURETTE^S DISORDER
     Dosage: 100 MG, DAILY
     Route: 065
  7. PAROXETINE [Concomitant]
     Indication: TOURETTE^S DISORDER
     Dosage: 10 MG, DAILY
     Route: 065
  8. SERTRALINE [Concomitant]
     Indication: TOURETTE^S DISORDER
     Dosage: 50 MG, DAILY
     Route: 065

REACTIONS (5)
  - Oculogyric crisis [Recovered/Resolved]
  - Confusional state [Recovered/Resolved]
  - Somnolence [Recovered/Resolved]
  - Decreased activity [Recovered/Resolved]
  - Drug interaction [Recovered/Resolved]
